FAERS Safety Report 25012416 (Version 1)
Quarter: 2025Q1

REPORT INFORMATION
  Report Type: Spontaneous
  Country: US (occurrence: None)
  Receive Date: 20250226
  Receipt Date: 20250226
  Transmission Date: 20250409
  Serious: No
  Sender: AXSOME THERAPEUTICS, INC.
  Company Number: US-Axsome Therapeutics, Inc.-AXS202412-002140

PATIENT
  Age: 45 Year
  Sex: Female

DRUGS (9)
  1. AUVELITY [Suspect]
     Active Substance: BUPROPION HYDROCHLORIDE\DEXTROMETHORPHAN HYDROBROMIDE
     Indication: Major depression
     Route: 065
     Dates: start: 20240924, end: 20241205
  2. VENLAFAXINE [Concomitant]
     Active Substance: VENLAFAXINE HYDROCHLORIDE
     Indication: Product used for unknown indication
     Route: 065
  3. GABAPENTIN [Concomitant]
     Active Substance: GABAPENTIN
     Indication: Product used for unknown indication
     Route: 065
  4. LORAZEPAM [Concomitant]
     Active Substance: LORAZEPAM
     Indication: Product used for unknown indication
     Route: 065
  5. ROPINIROLE [Concomitant]
     Active Substance: ROPINIROLE
     Indication: Restless legs syndrome
     Route: 065
  6. ARIPIPRAZOLE [Concomitant]
     Active Substance: ARIPIPRAZOLE
     Indication: Product used for unknown indication
     Route: 065
  7. LEVOTHYROXINE [Concomitant]
     Active Substance: LEVOTHYROXINE
     Indication: Product used for unknown indication
     Route: 065
  8. KEPPRA [Concomitant]
     Active Substance: LEVETIRACETAM
     Indication: Product used for unknown indication
     Route: 065
  9. CARBIDOPA\LEVODOPA [Concomitant]
     Active Substance: CARBIDOPA\LEVODOPA
     Indication: Product used for unknown indication
     Dosage: 25/100 MILLIGRAM
     Route: 065

REACTIONS (4)
  - Headache [Unknown]
  - Drug ineffective [Unknown]
  - Inappropriate schedule of product administration [Unknown]
  - Drug dose titration not performed [Unknown]
